FAERS Safety Report 13835846 (Version 1)
Quarter: 2017Q3

REPORT INFORMATION
  Report Type: Spontaneous
  Country: SG (occurrence: SG)
  Receive Date: 20170804
  Receipt Date: 20170804
  Transmission Date: 20171127
  Serious: Yes (Hospitalization)
  Sender: FDA-Public Use
  Company Number: SG-FRESENIUS KABI-FK201706589

PATIENT
  Age: 2 Month

DRUGS (1)
  1. BUPIVACAINE (MANUFACTURER UNKNOWN) [Suspect]
     Active Substance: BUPIVACAINE
     Indication: ANAESTHESIA
     Route: 050

REACTIONS (4)
  - Toxicity to various agents [Recovered/Resolved]
  - Generalised tonic-clonic seizure [Recovered/Resolved]
  - Drug administered to patient of inappropriate age [Recovered/Resolved]
  - Supraventricular tachycardia [Recovered/Resolved]
